FAERS Safety Report 8083076-2 (Version None)
Quarter: 2012Q1

REPORT INFORMATION
  Report Type: 
  Country: None (occurrence: None)
  Receive Date: 20120127
  Receipt Date: 20110302
  Transmission Date: 20120608
  Serious: No
  Sender: FDA-Public Use
  Company Number: US-ABBOTT-11P-163-0708799-00

PATIENT
  Sex: Female
  Weight: 73.094 kg

DRUGS (22)
  1. HUMIRA [Suspect]
     Indication: RHEUMATOID ARTHRITIS
     Dates: start: 20101006, end: 20110201
  2. LIPITOR [Concomitant]
     Indication: BLOOD CHOLESTEROL INCREASED
  3. APAP W/ CODEINE [Concomitant]
     Indication: PAIN
  4. UNKNOWN ASTHMA MEDICATION [Concomitant]
     Indication: ASTHMA
     Route: 045
  5. ADVAIR DISKUS 100/50 [Concomitant]
     Indication: ASTHMA
  6. KLOR-CON [Concomitant]
     Indication: MINERAL SUPPLEMENTATION
  7. MECLIZINE [Concomitant]
     Indication: VERTIGO
     Dosage: AS NEEDED
  8. AMBIEN [Concomitant]
     Indication: INSOMNIA
     Dosage: AS NEEDED
  9. PLAVIX [Concomitant]
     Indication: STENT PLACEMENT
  10. PREDNISONE TAB [Concomitant]
     Indication: RHEUMATOID ARTHRITIS
  11. FOLIC ACID [Concomitant]
     Indication: VITAMIN SUPPLEMENTATION
  12. TREXALL [Concomitant]
     Indication: RHEUMATOID ARTHRITIS
  13. VITAMIN B-12 [Concomitant]
     Indication: VITAMIN SUPPLEMENTATION
     Route: 048
  14. DICYCLOMINE [Concomitant]
     Indication: IRRITABLE BOWEL SYNDROME
  15. ATENOLOL [Concomitant]
     Indication: HYPERTENSION
  16. STARLIX [Concomitant]
     Indication: DIABETES MELLITUS
  17. LEVOTHYROXINE SODIUM [Concomitant]
     Indication: HYPOTHYROIDISM
  18. NITROLINGUAL [Concomitant]
     Indication: CHEST PAIN
     Dosage: PUMP SPRAY
  19. LISINOPRIL [Concomitant]
     Indication: HYPERTENSION
  20. PROTONIX [Concomitant]
     Indication: GASTROOESOPHAGEAL REFLUX DISEASE
  21. SINGULAIR [Concomitant]
     Indication: ASTHMA
  22. CILOSTAZOL [Concomitant]
     Indication: HYPERTENSION

REACTIONS (10)
  - HIATUS HERNIA [None]
  - APHONIA [None]
  - RHINORRHOEA [None]
  - INSOMNIA [None]
  - CARDIAC DISORDER [None]
  - ASTHENIA [None]
  - DYSPNOEA [None]
  - PERICARDIAL EFFUSION [None]
  - MICTURITION URGENCY [None]
  - FATIGUE [None]
